FAERS Safety Report 4950725-4 (Version None)
Quarter: 2006Q1

REPORT INFORMATION
  Report Type: 
  Country: None (occurrence: None)
  Receive Date: 20060321
  Receipt Date: 20060321
  Transmission Date: 20060701
  Serious: Yes (Life-Threatening, Hospitalization)
  Sender: FDA-Public Use
  Company Number: None

PATIENT
  Age: 76 Year
  Sex: Female
  Weight: 58.6 kg

DRUGS (1)
  1. ELOXATIN [Suspect]
     Indication: COLON CANCER
     Dosage: 100 MG/M2   INFUSED OVER 2-6 HR   IV
     Route: 042
     Dates: start: 20060314, end: 20060314

REACTIONS (1)
  - GRAND MAL CONVULSION [None]
